FAERS Safety Report 5607732-8 (Version None)
Quarter: 2008Q1

REPORT INFORMATION
  Report Type: 
  Country: None (occurrence: None)
  Receive Date: 20080130
  Receipt Date: 20080118
  Transmission Date: 20080703
  Serious: Yes (Hospitalization)
  Sender: FDA-Public Use
  Company Number: DE-ELI_LILLY_AND_COMPANY-DE200711001458

PATIENT
  Age: 71 Year
  Sex: Female

DRUGS (8)
  1. BYETTA [Suspect]
     Dosage: 5 UG, UNKNOWN
     Route: 058
  2. L-THYROXINE [Concomitant]
     Dosage: UNK, DAILY (1/D)
     Route: 048
  3. BISOPROLOL [Concomitant]
     Dosage: UNK, DAILY (1/D)
     Route: 065
  4. ASPIRIN [Concomitant]
     Dosage: UNK, DAILY (1/D)
     Route: 065
  5. FEMPRESS [Concomitant]
     Dosage: 0.5 D/F, DAILY (1/D)
     Route: 065
  6. MOLSIDOMIN [Concomitant]
     Dosage: UNK, DAILY (1/D)
     Route: 065
  7. MANINIL [Concomitant]
     Dosage: UNK, 2/D
     Route: 065
  8. METFORMIN HCL [Concomitant]
     Dosage: 1000 MG, DAILY (1/D)
     Route: 065

REACTIONS (1)
  - ATRIAL FIBRILLATION [None]
